FAERS Safety Report 6547899-0 (Version None)
Quarter: 2010Q1

REPORT INFORMATION
  Report Type: 
  Country: None (occurrence: None)
  Receive Date: 20100124
  Receipt Date: 20091112
  Transmission Date: 20100710
  Serious: No
  Sender: FDA-Public Use
  Company Number: US-ALEXION-A200900963

PATIENT
  Sex: Male

DRUGS (15)
  1. SOLIRIS [Suspect]
     Indication: PAROXYSMAL NOCTURNAL HAEMOGLOBINURIA
     Dosage: 600 MG, QW X4
     Dates: start: 20090625
  2. SOLIRIS [Suspect]
     Dosage: 900 MG, UNK
     Route: 042
     Dates: start: 20090724
  3. VITAMIN C                          /00008001/ [Concomitant]
     Dosage: 500 MG, QD
     Route: 048
  4. ASPIRIN [Concomitant]
     Dosage: 325 MG, QD
     Route: 048
  5. CENTRUM                            /00554501/ [Concomitant]
     Dosage: UNK
     Route: 048
  6. POTASSIUM CHLORIDE [Concomitant]
     Dosage: 40 MEQ, QD
     Route: 048
  7. DILTIAZEM [Concomitant]
     Dosage: 180 MG, QD
     Route: 048
  8. PREDNISONE [Concomitant]
     Dosage: 10 MG, QOD
     Route: 048
  9. PREDNISONE [Concomitant]
     Dosage: 5 MG, QOD
     Route: 048
  10. FOLIC ACID [Concomitant]
     Dosage: 1 MG, QD
     Route: 048
  11. ZOLPIDEM [Concomitant]
     Dosage: 5 MG, QHS
     Route: 048
  12. OMEPRAZOLE [Concomitant]
     Dosage: 20 MG, QD
     Route: 048
  13. METOPROLOL TARTRATE [Concomitant]
     Dosage: 50 MG, BID
     Route: 048
  14. SIMVASTATIN [Concomitant]
     Dosage: 40 MG, QD
     Route: 048
  15. PROTEIN SUPPLEMENTS [Concomitant]
     Dosage: UNK

REACTIONS (3)
  - ASTHENIA [None]
  - BLOOD PRODUCT TRANSFUSION DEPENDENT [None]
  - HAEMOGLOBIN DECREASED [None]
